FAERS Safety Report 23273342 (Version 3)
Quarter: 2023Q4

REPORT INFORMATION
  Report Type: Spontaneous
  Country: US (occurrence: US)
  Receive Date: 20231207
  Receipt Date: 20231221
  Transmission Date: 20240110
  Serious: Yes (Other)
  Sender: FDA-Public Use
  Company Number: US-MIRATI-MT2023PM05347

PATIENT

DRUGS (4)
  1. KRAZATI [Suspect]
     Active Substance: ADAGRASIB
     Indication: Colon cancer
     Dosage: 200 MG BID (1 TABLET IN THE MORNING AND ONE TABLET AT NIGHT 200 MG)
     Route: 048
     Dates: start: 20231107
  2. KRAZATI [Suspect]
     Active Substance: ADAGRASIB
     Indication: Lung neoplasm malignant
     Dosage: 600 MG, QD
     Route: 048
     Dates: start: 20231117
  3. KRAZATI [Suspect]
     Active Substance: ADAGRASIB
     Indication: Colon cancer
  4. FLUOROURACIL\IRINOTECAN [Suspect]
     Active Substance: FLUOROURACIL\IRINOTECAN
     Indication: Colon cancer
     Dosage: EVERY 3 WEEKS
     Route: 042

REACTIONS (11)
  - Mental impairment [Recovered/Resolved]
  - Headache [Recovered/Resolved]
  - Frequent bowel movements [Not Recovered/Not Resolved]
  - Hypersomnia [Recovered/Resolved]
  - Dissociation [Recovered/Resolved]
  - Cerebral disorder [Unknown]
  - Myalgia [Recovered/Resolved]
  - Fatigue [Not Recovered/Not Resolved]
  - Diarrhoea [Recovered/Resolved]
  - Diarrhoea [Recovered/Resolved]
  - Nausea [Recovered/Resolved]

NARRATIVE: CASE EVENT DATE: 20231107
